APPROVED DRUG PRODUCT: AMPICILLIN TRIHYDRATE
Active Ingredient: AMPICILLIN/AMPICILLIN TRIHYDRATE
Strength: EQ 250MG BASE
Dosage Form/Route: CAPSULE;ORAL
Application: A062883 | Product #001
Applicant: STRIDES PHARMA INTERNATIONAL AG
Approved: Feb 25, 1988 | RLD: No | RS: No | Type: DISCN